FAERS Safety Report 8942892 (Version 1)
Quarter: 2012Q4

REPORT INFORMATION
  Report Type: Spontaneous
  Country: GB (occurrence: None)
  Receive Date: 20121123
  Receipt Date: 20121123
  Transmission Date: 20130627
  Serious: Yes (Hospitalization)
  Sender: FDA-Public Use
  Company Number: 2012-03848

PATIENT
  Age: 43 Year
  Sex: Female

DRUGS (2)
  1. ALPRAZOLAM (UNKNOWN) [Suspect]
     Indication: OVERDOSE
  2. METHADONE [Suspect]
     Indication: OVERDOSE

REACTIONS (6)
  - Leukoencephalopathy [None]
  - Pneumonia aspiration [None]
  - Renal tubular necrosis [None]
  - Hepatic failure [None]
  - Hepatic ischaemia [None]
  - Overdose [None]
